FAERS Safety Report 14288780 (Version 2)
Quarter: 2017Q4

REPORT INFORMATION
  Report Type: Spontaneous
  Country: US (occurrence: US)
  Receive Date: 20171214
  Receipt Date: 20171218
  Transmission Date: 20180321
  Serious: Yes (Other)
  Sender: FDA-Public Use
  Company Number: US-PFIZER INC-2017531250

PATIENT
  Age: 70 Year
  Sex: Female
  Weight: 78.2 kg

DRUGS (4)
  1. PRISTIQ EXTENDED-RELEASE [Suspect]
     Active Substance: DESVENLAFAXINE SUCCINATE
     Dosage: 50 MG, 1X/DAY
  2. LOSARTAN. [Concomitant]
     Active Substance: LOSARTAN
     Indication: BLOOD PRESSURE ABNORMAL
     Dosage: UNK
  3. CLONAZEPAM. [Concomitant]
     Active Substance: CLONAZEPAM
     Indication: INSOMNIA
     Dosage: 2 MG, 1X/DAY (2MG, ORALLY, ONE AT BED TIME)
     Route: 048
  4. ALLOPURINOL. [Concomitant]
     Active Substance: ALLOPURINOL
     Indication: GOUT
     Dosage: UNK

REACTIONS (8)
  - Blood cholesterol decreased [Unknown]
  - Body fat disorder [Unknown]
  - Insomnia [Unknown]
  - Condition aggravated [Unknown]
  - Drug ineffective [Unknown]
  - Temporomandibular joint syndrome [Unknown]
  - Suicidal ideation [Unknown]
  - Depression [Unknown]
